FAERS Safety Report 26165318 (Version 2)
Quarter: 2025Q4

REPORT INFORMATION
  Report Type: Report from Study
  Country: KR (occurrence: KR)
  Receive Date: 20251216
  Receipt Date: 20251218
  Transmission Date: 20260117
  Serious: Yes (Other)
  Sender: ABBVIE
  Company Number: KR-ABBVIE-6589593

PATIENT
  Age: 50 Year
  Sex: Male
  Weight: 85 kg

DRUGS (6)
  1. RINVOQ [Suspect]
     Active Substance: UPADACITINIB
     Indication: Ankylosing spondylitis
     Dosage: FORM STRENGTH: 1 TABLET MODIFIED-RELEASE FILM-COATED TABLET
     Route: 048
     Dates: start: 20240902, end: 20241124
  2. RINVOQ [Suspect]
     Active Substance: UPADACITINIB
     Indication: Ankylosing spondylitis
     Dosage: FORM STRENGTH: 1 TABLET MODIFIED-RELEASE FILM-COATED TABLET
     Route: 048
     Dates: start: 20241231
  3. EZETIMIBE\PITAVASTATIN CALCIUM [Concomitant]
     Active Substance: EZETIMIBE\PITAVASTATIN CALCIUM
     Indication: Hyperlipidaemia
     Dosage: 4/10MG
  4. FEBUXOSTAT [Concomitant]
     Active Substance: FEBUXOSTAT
     Indication: Gout
  5. GODEX [Concomitant]
     Indication: Fatty liver alcoholic
  6. CELEBREX [Concomitant]
     Active Substance: CELECOXIB
     Indication: Axial spondyloarthritis

REACTIONS (1)
  - Hepatotoxicity [Recovered/Resolved]

NARRATIVE: CASE EVENT DATE: 20241125
